FAERS Safety Report 16313069 (Version 2)
Quarter: 2022Q1

REPORT INFORMATION
  Report Type: Spontaneous
  Country: CA (occurrence: CA)
  Receive Date: 20190515
  Receipt Date: 20220302
  Transmission Date: 20220424
  Serious: Yes (Hospitalization, Other)
  Sender: FDA-Public Use
  Company Number: CA-PURDUE PHARMA-CAN-2019-0010023

PATIENT
  Age: 85 Year
  Sex: Male

DRUGS (22)
  1. DILAUDID [Suspect]
     Active Substance: HYDROMORPHONE HYDROCHLORIDE
     Indication: Intervertebral disc disorder
     Dosage: UNK
     Route: 065
  2. DILAUDID [Suspect]
     Active Substance: HYDROMORPHONE HYDROCHLORIDE
     Dosage: UNK
     Route: 065
  3. DICLOFENAC [Suspect]
     Active Substance: DICLOFENAC
     Indication: Product used for unknown indication
     Dosage: UNK
     Route: 065
  4. LORAZEPAM [Suspect]
     Active Substance: LORAZEPAM
     Indication: Back pain
     Dosage: UNK
     Route: 065
  5. TYLENOL WITH CODEINE [Suspect]
     Active Substance: ACETAMINOPHEN\CODEINE PHOSPHATE
     Indication: Intervertebral disc disorder
     Dosage: UNK
     Route: 065
  6. WARFARIN [Suspect]
     Active Substance: WARFARIN
     Indication: Product used for unknown indication
     Dosage: UNK
     Route: 065
  7. PIRFENIDONE [Suspect]
     Active Substance: PIRFENIDONE
     Indication: Idiopathic pulmonary fibrosis
     Dosage: 267 MG, TID
     Route: 048
  8. PIRFENIDONE [Suspect]
     Active Substance: PIRFENIDONE
     Dosage: 534 MG, TID
     Route: 048
  9. PIRFENIDONE [Suspect]
     Active Substance: PIRFENIDONE
     Dosage: 534 MG, TID
     Route: 048
  10. PIRFENIDONE [Suspect]
     Active Substance: PIRFENIDONE
     Dosage: 267 MG, TID
     Route: 048
  11. PIRFENIDONE [Suspect]
     Active Substance: PIRFENIDONE
     Dosage: UNK
     Route: 048
  12. PIRFENIDONE [Suspect]
     Active Substance: PIRFENIDONE
     Dosage: 534 MG, TID
     Route: 048
  13. PIRFENIDONE [Suspect]
     Active Substance: PIRFENIDONE
     Dosage: 801 MG, TID
     Route: 048
  14. PIRFENIDONE [Suspect]
     Active Substance: PIRFENIDONE
     Dosage: UNK
     Route: 048
  15. ESBRIET [Suspect]
     Active Substance: PIRFENIDONE
     Indication: Idiopathic pulmonary fibrosis
     Dosage: 267 MG, TID
     Route: 048
  16. ESBRIET [Suspect]
     Active Substance: PIRFENIDONE
     Dosage: 534 MG, TID
     Route: 048
  17. ESBRIET [Suspect]
     Active Substance: PIRFENIDONE
     Dosage: 534 MG, TID
     Route: 048
  18. ESBRIET [Suspect]
     Active Substance: PIRFENIDONE
     Dosage: 267 MG, TID
     Route: 048
  19. ESBRIET [Suspect]
     Active Substance: PIRFENIDONE
     Dosage: UNK
     Route: 048
  20. ESBRIET [Suspect]
     Active Substance: PIRFENIDONE
     Dosage: 534 MG, TID
     Route: 048
  21. ESBRIET [Suspect]
     Active Substance: PIRFENIDONE
     Dosage: 801 MG, TID
     Route: 048
  22. ESBRIET [Suspect]
     Active Substance: PIRFENIDONE
     Dosage: UNK
     Route: 048

REACTIONS (22)
  - Eye haemorrhage [Unknown]
  - Retinal detachment [Unknown]
  - Intervertebral disc disorder [Unknown]
  - Lower respiratory tract infection [Unknown]
  - Abdominal discomfort [Unknown]
  - Abdominal distension [Unknown]
  - Asthenia [Unknown]
  - Chest pain [Unknown]
  - Decreased appetite [Unknown]
  - Diarrhoea [Unknown]
  - Dizziness [Unknown]
  - Drug interaction [Unknown]
  - Dyspnoea [Unknown]
  - Eructation [Unknown]
  - Eye pain [Unknown]
  - Fatigue [Unknown]
  - Feeling abnormal [Unknown]
  - Heart rate increased [Unknown]
  - International normalised ratio decreased [Unknown]
  - Pneumonia [Unknown]
  - Malaise [Unknown]
  - Nasopharyngitis [Unknown]
